FAERS Safety Report 23804411 (Version 6)
Quarter: 2024Q4

REPORT INFORMATION
  Report Type: Spontaneous
  Country: US (occurrence: US)
  Receive Date: 20240501
  Receipt Date: 20241112
  Transmission Date: 20250115
  Serious: Yes (Hospitalization, Other)
  Sender: PFIZER
  Company Number: US-PFIZER INC-PV202400054901

PATIENT
  Age: 69 Year
  Sex: Male
  Weight: 108.84 kg

DRUGS (20)
  1. TIKOSYN [Suspect]
     Active Substance: DOFETILIDE
     Indication: Cardiac disorder
     Dosage: 500 UG, 2X/DAY
     Route: 048
     Dates: start: 20230428
  2. ALBUTEROL SULFATE [Concomitant]
     Active Substance: ALBUTEROL SULFATE
     Dosage: 2 PUFFS BY MOUTH EVERY 4 TO 6 HOURS
     Route: 048
  3. ALLOPURINOL [Concomitant]
     Active Substance: ALLOPURINOL
     Dosage: TAKE 1 TABLET BY MOUTH ONCE DAILY.
     Route: 048
  4. CALCIPOTRIENE [Concomitant]
     Active Substance: CALCIPOTRIENE
     Dosage: UNK
  5. BACTRIM DS [Concomitant]
     Active Substance: SULFAMETHOXAZOLE\TRIMETHOPRIM
     Dosage: TAKE 1 TABLET EVERY 12 HOURS BY ORAL ROUTE FOR 10 DAYS.
     Route: 048
  6. CARVEDILOL [Concomitant]
     Active Substance: CARVEDILOL
     Dosage: TAKE 1 TABLET BY MOUTH TWICE DAILY.
     Route: 048
  7. CLINDAMYCIN HYDROCHLORIDE [Concomitant]
     Active Substance: CLINDAMYCIN HYDROCHLORIDE
     Dosage: TAKE 1 CAPSULE TWICE A DAY BY ORAL ROUTE FOR 10 DAYS
     Route: 048
  8. DOXYCYCLINE [Concomitant]
     Active Substance: DOXYCYCLINE
     Dosage: TAKE 1 CAPSULE BY MOUTH TWICE DAILY FOR 7 DAYS.
     Route: 048
  9. ELIQUIS [Concomitant]
     Active Substance: APIXABAN
     Dosage: TAKE 1 TABLET BY MOUTH TWICE DAILY.
     Route: 048
  10. EZETIMIBE [Concomitant]
     Active Substance: EZETIMIBE
     Dosage: TAKE 1 TABLET BY MOUTH ONCE DAILY.
     Route: 048
  11. FIASP [Concomitant]
     Active Substance: INSULIN ASPART
     Dosage: UNK
     Route: 058
  12. FLUOXETINE [Concomitant]
     Active Substance: FLUOXETINE HYDROCHLORIDE
     Dosage: TAKE 1 CAPSULE BY MOUTH ONCE DAILY.
     Route: 048
  13. GLIMEPIRIDE [Concomitant]
     Active Substance: GLIMEPIRIDE
     Dosage: TAKE 1 TABLET BY MOUTH TWICE DAILY.
     Route: 048
  14. INSULIN GLARGINE [Concomitant]
     Active Substance: INSULIN GLARGINE
     Dosage: UNK
     Route: 058
  15. JANUVIA [Concomitant]
     Active Substance: SITAGLIPTIN PHOSPHATE
     Dosage: TAKE 1 TABLET EVERY DAY BY ORAL ROUTE.
     Route: 048
  16. LANTUS SOLOSTAR [Concomitant]
     Active Substance: INSULIN GLARGINE
     Dosage: UNK
     Route: 058
  17. LEVOTHYROXINE [Concomitant]
     Active Substance: LEVOTHYROXINE
     Dosage: TAKE 1 TABLET BY MOUTH ON MON, WED AND FRI
     Route: 048
  18. LEVOTHYROXINE [Concomitant]
     Active Substance: LEVOTHYROXINE
     Dosage: TAKE 1 TABLET BY MOUTH ONCE DAILY ON TUE, THUR, SAT AND SUN.
     Route: 048
  19. MUPIROCIN [Concomitant]
     Active Substance: MUPIROCIN
     Dosage: APPLY OINTMENT TOPICALLY TO AFFECTED AREA TWICE DAILY UNTIL HEALED.
     Route: 061
  20. SPIRONOLACTONE [Concomitant]
     Active Substance: SPIRONOLACTONE
     Dosage: TAKE 1 TABLET BY MOUTH ONCE DAILY AS NEEDED.
     Route: 048

REACTIONS (2)
  - Road traffic accident [Recovered/Resolved]
  - Impaired driving ability [Unknown]

NARRATIVE: CASE EVENT DATE: 20230910
